FAERS Safety Report 20572996 (Version 1)
Quarter: 2022Q1

REPORT INFORMATION
  Report Type: Spontaneous
  Country: US (occurrence: None)
  Receive Date: 20220309
  Receipt Date: 20220309
  Transmission Date: 20220424
  Serious: Yes (Death, Hospitalization)
  Sender: FDA-Public Use
  Company Number: None

PATIENT
  Sex: Male
  Weight: 72.7 kg

DRUGS (1)
  1. RITUXIMAB [Suspect]
     Active Substance: RITUXIMAB
     Dates: end: 20211115

REACTIONS (4)
  - COVID-19 [None]
  - Condition aggravated [None]
  - Hypoxia [None]
  - Immunosuppression [None]

NARRATIVE: CASE EVENT DATE: 20220111
